FAERS Safety Report 8835778 (Version 1)
Quarter: 2012Q4

REPORT INFORMATION
  Report Type: 
  Country: None (occurrence: FR)
  Receive Date: 20121011
  Receipt Date: 20121011
  Transmission Date: 20130627
  Serious: Yes (Hospitalization)
  Sender: FDA-Public Use
  Company Number: FR-EISAI INC-E3810-05976-SPO-FR

PATIENT
  Age: 89 Year
  Sex: Female

DRUGS (7)
  1. ACIPHEX (RABEPRAZOLE) [Suspect]
     Indication: DRUG USE FOR UNKNOWN INDICATION
     Route: 048
     Dates: start: 20120702, end: 20120905
  2. MIANSERIN HYDROCHLORIDE [Suspect]
     Indication: DRUG USE FOR UNKNOWN INDICATION
     Route: 048
     Dates: start: 20120109, end: 20120905
  3. ATORVASTATIN CALCIUM [Suspect]
     Indication: DRUG USE FOR UNKNOWN INDICATION
     Route: 048
  4. LORAZEPAM [Suspect]
     Indication: DRUG USE FOR UNKNOWN INDICATION
     Route: 048
     Dates: start: 20120702, end: 20120905
  5. LORAZEPAM [Suspect]
     Route: 048
     Dates: start: 20120907
  6. COLECALCIFEROL [Concomitant]
     Route: 065
  7. LEKOVIT CA [Concomitant]
     Route: 065

REACTIONS (1)
  - Convulsion [Recovered/Resolved]
